FAERS Safety Report 9233872 (Version 1)
Quarter: 2013Q1

REPORT INFORMATION
  Report Type: Spontaneous
  Country: US (occurrence: None)
  Receive Date: 20121031
  Receipt Date: 20121031
  Transmission Date: 20140127
  Serious: Yes (Other)
  Sender: FDA-Public Use
  Company Number: PHEH2012US013381

PATIENT
  Age: 39 Year
  Sex: Female

DRUGS (3)
  1. GILENYA [Suspect]
     Indication: RELAPSING-REMITTING MULTIPLE SCLEROSIS
     Route: 048
     Dates: start: 20120223, end: 20120621
  2. TEMAZEPAM (TEMAZEPAM) [Concomitant]
  3. CLONAZEPAM (CLONAZEPAM) (CLONAZEPAM) [Concomitant]

REACTIONS (8)
  - Herpes zoster [None]
  - Hepatic enzyme increased [None]
  - Neuralgia [None]
  - Rash macular [None]
  - Blood immunoglobulin M increased [None]
  - Blister [None]
  - Aspartate aminotransferase increased [None]
  - Alanine aminotransferase increased [None]
